FAERS Safety Report 6238316-9 (Version None)
Quarter: 2009Q2

REPORT INFORMATION
  Report Type: 
  Country: None (occurrence: None)
  Receive Date: 20090622
  Receipt Date: 20090616
  Transmission Date: 20091009
  Serious: Yes (Other)
  Sender: FDA-Public Use
  Company Number: US-BAYER-200921324NA

PATIENT
  Age: 20 Year
  Sex: Female
  Weight: 77 kg

DRUGS (1)
  1. OCELLA [Suspect]
     Indication: CONTRACEPTION
     Route: 048
     Dates: start: 20080901, end: 20090423

REACTIONS (5)
  - BULIMIA NERVOSA [None]
  - DEPRESSION [None]
  - OCULAR ICTERUS [None]
  - SELF-INDUCED VOMITING [None]
  - URINARY TRACT DISORDER [None]
